FAERS Safety Report 8507748-8 (Version None)
Quarter: 2012Q3

REPORT INFORMATION
  Report Type: 
  Country: None (occurrence: None)
  Receive Date: 20120709
  Receipt Date: 20120709
  Transmission Date: 20120928
  Serious: No
  Sender: FDA-Public Use
  Company Number: None

PATIENT

DRUGS (3)
  1. POTASSIUM CHLORIDE [Suspect]
     Dosage: INJECTABLE INJECTION
     Route: 042
  2. GENTAMICIN SULFATE [Suspect]
     Dosage: INJECTABLE INJECTION
     Route: 042
  3. METRONIDIAZOLE [Suspect]
     Dosage: INJECTABLE INJECTION
     Route: 042

REACTIONS (4)
  - DRUG DISPENSING ERROR [None]
  - INFUSION SITE PAIN [None]
  - MEDICATION ERROR [None]
  - WRONG DRUG ADMINISTERED [None]
